FAERS Safety Report 26063388 (Version 1)
Quarter: 2025Q4

REPORT INFORMATION
  Report Type: Spontaneous
  Country: CN (occurrence: None)
  Receive Date: 20251119
  Receipt Date: 20251119
  Transmission Date: 20260117
  Serious: Yes (Hospitalization)
  Sender: ACS DOBFAR
  Company Number: CN-ACS-20250601

PATIENT
  Age: 2 Hour
  Sex: Male

DRUGS (3)
  1. AMPICILLIN SODIUM [Suspect]
     Active Substance: AMPICILLIN SODIUM
     Indication: Evidence based treatment
     Dosage: (150MG/KG/D)
     Route: 040
  2. CEFOTAXIME [Concomitant]
     Active Substance: CEFOTAXIME SODIUM
     Indication: Evidence based treatment
     Dosage: (100MG/KG/D)
     Route: 040
  3. FENTANYL CITRATE [Concomitant]
     Active Substance: FENTANYL CITRATE
     Indication: Analgosedation
     Dosage: (1UG/KG/H)
     Route: 040

REACTIONS (1)
  - Acute generalised exanthematous pustulosis [Recovered/Resolved]
